FAERS Safety Report 24188765 (Version 1)
Quarter: 2024Q3

REPORT INFORMATION
  Report Type: Spontaneous
  Country: US (occurrence: US)
  Receive Date: 20240808
  Receipt Date: 20240808
  Transmission Date: 20241016
  Serious: No
  Sender: OTSUKA
  Company Number: US-OTSUKA-2024_001642

PATIENT
  Age: 29 Year
  Sex: Male
  Weight: 51.71 kg

DRUGS (3)
  1. ABILIFY [Suspect]
     Active Substance: ARIPIPRAZOLE
     Indication: Psychotic disorder
     Dosage: 5 MG, BID (5 MG IN THE MORNING AND 5 MG AT NIGHT)
     Route: 048
     Dates: start: 20240105, end: 20240112
  2. ABILIFY [Suspect]
     Active Substance: ARIPIPRAZOLE
     Dosage: 60 MG
     Route: 048
     Dates: start: 20240111
  3. ARIPIPRAZOLE [Suspect]
     Active Substance: ARIPIPRAZOLE
     Indication: Psychotic disorder
     Dosage: UNK (441MG-1.6ML ONE DOSE AND 1 DOSE, 675MG-2.5ML/GIVEN TWO SHOTS)
     Route: 030
     Dates: start: 202401

REACTIONS (5)
  - Injection site infection [Unknown]
  - Overdose [Unknown]
  - Inappropriate schedule of product administration [Unknown]
  - Product use in unapproved indication [Unknown]
  - Refusal of treatment by patient [Unknown]

NARRATIVE: CASE EVENT DATE: 20240101
